FAERS Safety Report 22786074 (Version 3)
Quarter: 2023Q4

REPORT INFORMATION
  Report Type: Spontaneous
  Country: US (occurrence: US)
  Receive Date: 20230804
  Receipt Date: 20231113
  Transmission Date: 20240109
  Serious: Yes (Hospitalization, Disabling, Other)
  Sender: FDA-Public Use
  Company Number: US-SANOFI-01712717

PATIENT
  Age: 76 Year
  Sex: Female

DRUGS (1)
  1. KEVZARA [Suspect]
     Active Substance: SARILUMAB
     Dosage: 200 MG
     Dates: start: 202211, end: 202302

REACTIONS (5)
  - Gait disturbance [Unknown]
  - Haemorrhage [Unknown]
  - Thrombosis [Unknown]
  - Visual impairment [Unknown]
  - Gastrointestinal disorder [Unknown]
